FAERS Safety Report 25621808 (Version 1)
Quarter: 2025Q3

REPORT INFORMATION
  Report Type: Spontaneous
  Country: US (occurrence: US)
  Receive Date: 20250730
  Receipt Date: 20250730
  Transmission Date: 20251020
  Serious: Yes (Other)
  Sender: SANDOZ
  Company Number: US-SANDOZ-SDZ2025US053700

PATIENT
  Sex: Male

DRUGS (9)
  1. AZITHROMYCIN [Suspect]
     Active Substance: AZITHROMYCIN
     Indication: Mycobacterium abscessus infection
     Route: 065
  2. AMIKACIN [Suspect]
     Active Substance: AMIKACIN
     Indication: Mycobacterium abscessus infection
     Route: 065
  3. CEFTAROLINE [Suspect]
     Active Substance: CEFTAROLINE
     Indication: Mycobacterium abscessus infection
     Route: 065
  4. CEFTAZIDIME [Suspect]
     Active Substance: CEFTAZIDIME
     Indication: Mycobacterium abscessus infection
     Route: 065
  5. ERAVACYCLINE [Suspect]
     Active Substance: ERAVACYCLINE
     Indication: Mycobacterium abscessus infection
     Route: 065
  6. IMIPENEM [Suspect]
     Active Substance: IMIPENEM
     Indication: Mycobacterium abscessus infection
     Route: 065
  7. LINEZOLID [Suspect]
     Active Substance: LINEZOLID
     Indication: Mycobacterium abscessus infection
     Route: 065
  8. OMADACYCLINE [Suspect]
     Active Substance: OMADACYCLINE
     Indication: Mycobacterium abscessus infection
     Route: 048
  9. TEDIZOLID [Suspect]
     Active Substance: TEDIZOLID
     Indication: Mycobacterium abscessus infection
     Route: 065

REACTIONS (2)
  - Thrombocytopenia [Unknown]
  - Deafness [Unknown]
